FAERS Safety Report 17699152 (Version 2)
Quarter: 2020Q4

REPORT INFORMATION
  Report Type: Spontaneous
  Country: US (occurrence: US)
  Receive Date: 20200423
  Receipt Date: 20201124
  Transmission Date: 20210113
  Serious: Yes (Hospitalization)
  Sender: FDA-Public Use
  Company Number: US-CELGENEUS-USA-20200406003

PATIENT
  Age: 80 Year
  Sex: Male
  Weight: 85.7 kg

DRUGS (30)
  1. ABRAXANE [Suspect]
     Active Substance: PACLITAXEL
     Dosage: 125 MG
     Route: 042
     Dates: start: 20190826, end: 20190826
  2. OLECLUMAB (MEDI9447) [Suspect]
     Active Substance: OLECLUMAB
     Dosage: 3000 MILLIGRAM
     Route: 042
     Dates: start: 20190918, end: 20190918
  3. OLECLUMAB (MEDI9447) [Suspect]
     Active Substance: OLECLUMAB
     Dosage: 3000 MG
     Route: 042
     Dates: start: 20191016, end: 20191016
  4. OLECLUMAB (MEDI9447) [Suspect]
     Active Substance: OLECLUMAB
     Dosage: 3000 MG
     Route: 042
     Dates: start: 20200109, end: 20200109
  5. GEMCITABINE. [Suspect]
     Active Substance: GEMCITABINE
     Dosage: 1000 MG
     Route: 041
     Dates: start: 20190826, end: 20190826
  6. GEMCITABINE. [Suspect]
     Active Substance: GEMCITABINE
     Dosage: 800 MG
     Route: 065
     Dates: start: 20191016, end: 20191016
  7. ABRAXANE [Suspect]
     Active Substance: PACLITAXEL
     Dosage: 100 MG
     Route: 042
     Dates: start: 20191114, end: 20191114
  8. ABRAXANE [Suspect]
     Active Substance: PACLITAXEL
     Dosage: 100 MG
     Route: 042
     Dates: start: 20200109, end: 20200109
  9. ABRAXANE [Suspect]
     Active Substance: PACLITAXEL
     Dosage: 100 MG
     Route: 042
     Dates: start: 20200123, end: 20200123
  10. ABRAXANE [Suspect]
     Active Substance: PACLITAXEL
     Dosage: 125 MG
     Route: 042
     Dates: start: 20190918, end: 20190918
  11. OLECLUMAB (MEDI9447) [Suspect]
     Active Substance: OLECLUMAB
     Indication: DUCTAL ADENOCARCINOMA OF PANCREAS
     Dosage: 3000 MILLIGRAM
     Route: 042
     Dates: start: 20190819, end: 20190819
  12. GEMCITABINE. [Suspect]
     Active Substance: GEMCITABINE
     Dosage: 800 MILLIGRAM
     Route: 065
     Dates: start: 20191127, end: 20191127
  13. GEMCITABINE. [Suspect]
     Active Substance: GEMCITABINE
     Dosage: 800 MG
     Route: 065
     Dates: start: 20200109, end: 20200109
  14. OLECLUMAB (MEDI9447) [Suspect]
     Active Substance: OLECLUMAB
     Dosage: 3000 MG
     Route: 042
     Dates: start: 20191212, end: 20191212
  15. ABRAXANE [Suspect]
     Active Substance: PACLITAXEL
     Dosage: 1000 MG
     Route: 042
     Dates: start: 20190925, end: 20190925
  16. ABRAXANE [Suspect]
     Active Substance: PACLITAXEL
     Dosage: 100 MG
     Route: 042
     Dates: start: 20191016, end: 20191016
  17. ABRAXANE [Suspect]
     Active Substance: PACLITAXEL
     Dosage: 100 MG
     Route: 042
     Dates: start: 20191127, end: 20191127
  18. GEMCITABINE. [Suspect]
     Active Substance: GEMCITABINE
     Dosage: 800 MILLIGRAM
     Route: 065
     Dates: start: 20191024, end: 20191024
  19. GEMCITABINE. [Suspect]
     Active Substance: GEMCITABINE
     Dosage: 800 MILLIGRAM
     Route: 065
     Dates: start: 20191212, end: 20191212
  20. ABRAXANE [Suspect]
     Active Substance: PACLITAXEL
     Dosage: 100 MG
     Route: 042
     Dates: start: 20191226, end: 20191226
  21. GEMCITABINE. [Suspect]
     Active Substance: GEMCITABINE
     Dosage: 1000 MG
     Route: 041
     Dates: start: 20190918, end: 20190918
  22. GEMCITABINE. [Suspect]
     Active Substance: GEMCITABINE
     Dosage: 1000 MILLIGRAM
     Route: 041
     Dates: start: 20190925, end: 20191016
  23. GEMCITABINE. [Suspect]
     Active Substance: GEMCITABINE
     Dosage: 800 MILLIGRAM
     Route: 065
     Dates: start: 20191114, end: 20191114
  24. GEMCITABINE. [Suspect]
     Active Substance: GEMCITABINE
     Dosage: 800 MG
     Route: 065
     Dates: start: 20191226, end: 20191226
  25. ABRAXANE [Suspect]
     Active Substance: PACLITAXEL
     Indication: DUCTAL ADENOCARCINOMA OF PANCREAS
     Dosage: 125 MILLIGRAM
     Route: 042
     Dates: start: 20190819, end: 20190819
  26. ABRAXANE [Suspect]
     Active Substance: PACLITAXEL
     Dosage: 100 MG
     Route: 042
     Dates: start: 20191024, end: 20191024
  27. ABRAXANE [Suspect]
     Active Substance: PACLITAXEL
     Dosage: 100 MG
     Route: 042
     Dates: start: 20191212, end: 20191212
  28. OLECLUMAB (MEDI9447) [Suspect]
     Active Substance: OLECLUMAB
     Dosage: 3000 MG
     Route: 042
     Dates: start: 20191114, end: 20191114
  29. GEMCITABINE. [Suspect]
     Active Substance: GEMCITABINE
     Indication: DUCTAL ADENOCARCINOMA OF PANCREAS
     Dosage: 1000 MG
     Route: 041
     Dates: start: 20190819, end: 20190819
  30. GEMCITABINE. [Suspect]
     Active Substance: GEMCITABINE
     Dosage: 800 MILLIGRAM
     Route: 065
     Dates: start: 20200123, end: 20200123

REACTIONS (1)
  - Ascites [Not Recovered/Not Resolved]

NARRATIVE: CASE EVENT DATE: 20200130
